FAERS Safety Report 13237476 (Version 1)
Quarter: 2017Q1

REPORT INFORMATION
  Report Type: Spontaneous
  Country: DE (occurrence: DE)
  Receive Date: 20170215
  Receipt Date: 20170215
  Transmission Date: 20170428
  Serious: Yes (Hospitalization)
  Sender: FDA-Public Use
  Company Number: DE-ELI_LILLY_AND_COMPANY-DE201702004054

PATIENT
  Sex: Female

DRUGS (6)
  1. XEPLION [Concomitant]
     Active Substance: PALIPERIDONE PALMITATE
     Dosage: 100 MG, UNKNOWN
     Route: 065
     Dates: start: 20170124
  2. LYRICA [Concomitant]
     Active Substance: PREGABALIN
     Dosage: 150 MG, QD
     Route: 065
  3. LETROZOLE. [Concomitant]
     Active Substance: LETROZOLE
     Dosage: 2.5 MG, QD
     Route: 065
     Dates: start: 201608
  4. RISPERIDON [Concomitant]
     Active Substance: RISPERIDONE
     Dosage: UNK, QD
     Route: 065
     Dates: start: 20170106, end: 20170124
  5. OLANZAPINE. [Suspect]
     Active Substance: OLANZAPINE
     Indication: PRODUCT USED FOR UNKNOWN INDICATION
     Dosage: UNK, UNKNOWN
     Route: 065
     Dates: start: 20161120, end: 20170105
  6. XEPLION [Concomitant]
     Active Substance: PALIPERIDONE PALMITATE
     Dosage: 150 MG, UNKNOWN
     Route: 065
     Dates: start: 20170117

REACTIONS (1)
  - Leukopenia [Unknown]
